FAERS Safety Report 16304583 (Version 2)
Quarter: 2019Q3

REPORT INFORMATION
  Report Type: Spontaneous
  Country: ES (occurrence: ES)
  Receive Date: 20190513
  Receipt Date: 20190909
  Transmission Date: 20191004
  Serious: Yes (Disabling, Other)
  Sender: FDA-Public Use
  Company Number: ES-ENDO PHARMACEUTICALS INC-2019-104550

PATIENT
  Age: 45 Year
  Sex: Male
  Weight: 8 kg

DRUGS (1)
  1. XIAFLEX [Suspect]
     Active Substance: COLLAGENASE CLOSTRIDIUM HISTOLYTICUM
     Indication: PEYRONIE^S DISEASE
     Dosage: 0.9 MG, WEEKLY
     Route: 026
     Dates: start: 20170905, end: 20170912

REACTIONS (2)
  - Nerve injury [Recovered/Resolved]
  - Sensory loss [Recovered/Resolved]

NARRATIVE: CASE EVENT DATE: 20170913
